FAERS Safety Report 8259320-5 (Version None)
Quarter: 2012Q2

REPORT INFORMATION
  Report Type: 
  Country: None (occurrence: None)
  Receive Date: 20120404
  Receipt Date: 20120327
  Transmission Date: 20120825
  Serious: Yes (Death)
  Sender: FDA-Public Use
  Company Number: US-CELGENEUS-163-21880-12011060

PATIENT
  Sex: Male

DRUGS (6)
  1. ACYCLOVIR [Concomitant]
     Dosage: 400 MILLIGRAM
     Route: 048
  2. FOLIC ACID [Concomitant]
     Dosage: 1 MILLIGRAM
     Route: 048
  3. PRILOSEC [Concomitant]
     Dosage: 20 MILLIGRAM
     Route: 048
  4. ZOMETA [Concomitant]
     Dosage: 3.3 MILLIGRAM
     Route: 041
  5. NORVASC [Concomitant]
     Indication: HYPERTENSION
     Dosage: 5 MILLIGRAM
     Route: 048
  6. REVLIMID [Suspect]
     Indication: MULTIPLE MYELOMA
     Dosage: 5 MILLIGRAM
     Route: 048
     Dates: start: 20111228

REACTIONS (2)
  - MULTIPLE MYELOMA [None]
  - RENAL FAILURE [None]
